FAERS Safety Report 8904707 (Version 2)
Quarter: 2012Q4

REPORT INFORMATION
  Report Type: 
  Country: GB (occurrence: GB)
  Receive Date: 20121112
  Receipt Date: 20121120
  Transmission Date: 20130627
  Serious: Yes (Death)
  Sender: FDA-Public Use
  Company Number: GB-009507513-1211GBR004427

PATIENT
  Age: 51 Year
  Sex: Male

DRUGS (2)
  1. VIRAFERONPEG [Suspect]
     Indication: HEPATITIS C
     Dosage: UNK, pen
     Route: 058
     Dates: start: 20120611, end: 20121022
  2. TELAPREVIR [Suspect]
     Dosage: UNK
     Dates: end: 20120904

REACTIONS (2)
  - Death [Fatal]
  - Cardiomegaly [Unknown]
